FAERS Safety Report 4474885-7 (Version None)
Quarter: 2004Q4

REPORT INFORMATION
  Report Type: 
  Country: None (occurrence: None)
  Receive Date: 20041014
  Receipt Date: 20041007
  Transmission Date: 20050328
  Serious: Yes (Life-Threatening, Hospitalization, Disabling)
  Sender: FDA-Public Use
  Company Number: US-MERCK-0410USA01026

PATIENT
  Sex: Female

DRUGS (3)
  1. HYDROCODONE HYDROCHLORIDE [Concomitant]
     Route: 065
  2. VIOXX [Suspect]
     Route: 048
     Dates: start: 20031021, end: 20040101
  3. ZOLOFT [Concomitant]
     Route: 065

REACTIONS (2)
  - OVERDOSE [None]
  - PANIC ATTACK [None]
